FAERS Safety Report 24422518 (Version 1)
Quarter: 2024Q4

REPORT INFORMATION
  Report Type: Spontaneous
  Country: US (occurrence: None)
  Receive Date: 20241009
  Receipt Date: 20241009
  Transmission Date: 20250115
  Serious: Yes (Life-Threatening, Hospitalization)
  Sender: Public
  Company Number: None

PATIENT
  Age: 73 Year
  Sex: Male

DRUGS (5)
  1. SULFAMETHOXAZOLE AND TRIMETHOPRIM [Suspect]
     Active Substance: SULFAMETHOXAZOLE\TRIMETHOPRIM
     Indication: Urinary tract infection
     Dosage: FREQUENCY : TWICE A DAY;?
     Route: 048
  2. SPIRONOLACTONE [Suspect]
     Active Substance: SPIRONOLACTONE
     Indication: Hypertension
     Dosage: FREQUENCY : DAILY;?
     Route: 048
     Dates: end: 20240514
  3. FLUCONAZOLE [Suspect]
     Active Substance: FLUCONAZOLE
  4. CHLORTHALIDONE [Suspect]
     Active Substance: CHLORTHALIDONE
  5. FUROSEMIDE [Suspect]
     Active Substance: FUROSEMIDE

REACTIONS (3)
  - Acute kidney injury [None]
  - Hyperkalaemia [None]
  - Bradycardia [None]

NARRATIVE: CASE EVENT DATE: 20240514
